FAERS Safety Report 21484183 (Version 1)
Quarter: 2022Q4

REPORT INFORMATION
  Report Type: Spontaneous
  Country: US (occurrence: US)
  Receive Date: 20221020
  Receipt Date: 20221020
  Transmission Date: 20230112
  Serious: No
  Sender: FDA-Public Use
  Company Number: US-SA-SAC20221019000257

PATIENT
  Sex: Male

DRUGS (4)
  1. ALPROLIX [Suspect]
     Active Substance: EFTRENONACOG ALFA
     Indication: Factor IX deficiency
     Dosage: 2000 U (2 VIALS. INFUSE ONE VIAL (2162 UNITS) I.V. AS NEEDED FOR MINOR BLEEDS OR TWO VIALS (4324 UNI
     Route: 042
     Dates: start: 20210917
  2. ALPROLIX [Suspect]
     Active Substance: EFTRENONACOG ALFA
     Indication: Factor IX deficiency
     Dosage: 2000 U (2 VIALS. INFUSE ONE VIAL (2162 UNITS) I.V. AS NEEDED FOR MINOR BLEEDS OR TWO VIALS (4324 UNI
     Route: 042
     Dates: start: 20210917
  3. ALPROLIX [Suspect]
     Active Substance: EFTRENONACOG ALFA
     Indication: Haemorrhage
  4. ALPROLIX [Suspect]
     Active Substance: EFTRENONACOG ALFA
     Indication: Haemorrhage

REACTIONS (1)
  - Dental care [Unknown]
